FAERS Safety Report 7405530-6 (Version None)
Quarter: 2011Q2

REPORT INFORMATION
  Report Type: 
  Country: None (occurrence: None)
  Receive Date: 20110411
  Receipt Date: 20110330
  Transmission Date: 20111010
  Serious: No
  Sender: FDA-Public Use
  Company Number: B0710760A

PATIENT
  Age: 1 Year

DRUGS (4)
  1. PANVITAN [Concomitant]
     Route: 063
  2. RELENZA [Suspect]
     Dosage: 20MG PER DAY
     Route: 063
     Dates: start: 20110330
  3. KLARICID [Concomitant]
     Route: 063
  4. BIOFERMIN R [Concomitant]
     Route: 063

REACTIONS (1)
  - DRUG EXPOSURE VIA BREAST MILK [None]
